FAERS Safety Report 9040779 (Version 1)
Quarter: 2013Q1

REPORT INFORMATION
  Report Type: Report from Study
  Country: US (occurrence: US)
  Receive Date: 20130129
  Receipt Date: 20130129
  Transmission Date: 20140127
  Serious: Yes (Other)
  Sender: FDA-Public Use
  Company Number: US-JNJFOC-20130112729

PATIENT
  Age: 33 Year
  Sex: Female

DRUGS (6)
  1. REMICADE [Suspect]
     Indication: COLITIS ULCERATIVE
     Route: 042
  2. REMICADE [Suspect]
     Indication: COLITIS ULCERATIVE
     Route: 042
     Dates: start: 200907
  3. METHOTREXATE [Concomitant]
     Dates: start: 20121218
  4. SINGULAIR [Concomitant]
     Indication: PRURITUS
  5. PREMEDICATION [Concomitant]
  6. ZYRTEC [Concomitant]
     Indication: PRURITUS

REACTIONS (6)
  - Chest pain [Unknown]
  - Dyspnoea [Unknown]
  - Rash [Unknown]
  - Lip swelling [Unknown]
  - Pruritus [Unknown]
  - Oropharyngeal pain [Unknown]
